FAERS Safety Report 4341710-4 (Version None)
Quarter: 2004Q2

REPORT INFORMATION
  Report Type: 
  Country: None (occurrence: None)
  Receive Date: 20040420
  Receipt Date: 20040324
  Transmission Date: 20050107
  Serious: Yes (Death, Hospitalization)
  Sender: FDA-Public Use
  Company Number: PHHO2004PA04494

PATIENT
  Age: 32 Year
  Sex: Female
  Weight: 81 kg

DRUGS (3)
  1. NEORAL [Suspect]
     Indication: RENAL TRANSPLANT
     Dosage: 300 MG / DAY
     Route: 048
     Dates: start: 20001219, end: 20040125
  2. MYCOPHENOLATE MOFETIL [Suspect]
     Indication: RENAL TRANSPLANT
     Dosage: 2 G / DAY
     Route: 048
     Dates: start: 20001101, end: 20040101
  3. PREDNISONE [Suspect]
     Indication: RENAL TRANSPLANT
     Dosage: 10 MG / DAY
     Route: 048
     Dates: start: 20001101, end: 20040101

REACTIONS (7)
  - ABDOMINAL PAIN [None]
  - INFECTION IN AN IMMUNOCOMPROMISED HOST [None]
  - NOSOCOMIAL INFECTION [None]
  - PERITONEAL TUBERCULOSIS [None]
  - PNEUMONIA [None]
  - PYREXIA [None]
  - SEPTIC SHOCK [None]
